FAERS Safety Report 7178558-1 (Version None)
Quarter: 2010Q4

REPORT INFORMATION
  Report Type: 
  Country: None (occurrence: None)
  Receive Date: 20101221
  Receipt Date: 20101209
  Transmission Date: 20110411
  Serious: Yes (Hospitalization)
  Sender: FDA-Public Use
  Company Number: US-BIOGENIDEC-2010BI043122

PATIENT
  Age: 54 Year
  Sex: Female

DRUGS (9)
  1. TYSABRI [Suspect]
     Indication: MULTIPLE SCLEROSIS
     Route: 042
     Dates: start: 20081104
  2. PROVIGIL [Concomitant]
     Indication: FATIGUE
     Route: 048
  3. CYMBALTA [Concomitant]
     Indication: DEPRESSION
     Route: 048
  4. VITAMIN D 3 [Concomitant]
     Indication: SUPPLEMENTATION THERAPY
     Route: 048
  5. COUMADIN [Concomitant]
     Route: 048
  6. COUMADIN [Concomitant]
     Route: 048
  7. BACLOFEN [Concomitant]
     Indication: MUSCLE SPASTICITY
     Route: 048
  8. PROBIOTICS [Concomitant]
     Route: 048
  9. CRANBERRY [Concomitant]
     Route: 048

REACTIONS (1)
  - DEVICE RELATED SEPSIS [None]
